FAERS Safety Report 20061666 (Version 1)
Quarter: 2021Q4

REPORT INFORMATION
  Report Type: Spontaneous
  Country: BR (occurrence: BR)
  Receive Date: 20211112
  Receipt Date: 20211112
  Transmission Date: 20220303
  Serious: Yes (Other)
  Sender: FDA-Public Use
  Company Number: None

PATIENT
  Sex: Female

DRUGS (5)
  1. EZETIMIBE [Suspect]
     Active Substance: EZETIMIBE
     Indication: Hepatic steatosis
     Dosage: AFTER LUNCH, STARTED 7 OR 6 YEARS AGO OR SO, CONTINUES (1 DOSAGE FORM PER DAY)
     Route: 048
  2. EZETIMIBE [Suspect]
     Active Substance: EZETIMIBE
     Indication: Blood cholesterol
  3. ATENOLOL [Suspect]
     Active Substance: ATENOLOL
     Dosage: USED FOR MORE THAN 10 YEARS, DOCTOR SWITCHED TO LOSARTAN, ENDING 7 OR 6 YEARS AGO
  4. SYNTHROID [Suspect]
     Active Substance: LEVOTHYROXINE SODIUM
     Indication: Hypothyroidism
     Dosage: IN THE MORNING, FASTING, STARTED 15 OR 16 YEARS AGO (88 MICROGRAM, PER DAY)
     Route: 048
  5. METFORMIN HYDROCHLORIDE [Concomitant]
     Active Substance: METFORMIN HYDROCHLORIDE
     Indication: Glucose tolerance impaired
     Dosage: AFTER LUNCH DUE TO REFLUX, STARTED ABOUT 7 OR 6 YEARS AGO, CONTINUES (1 DOSAGE FORM, PER DAY)
     Route: 048

REACTIONS (8)
  - Bradycardia [Unknown]
  - Tachycardia [Unknown]
  - Nervousness [Unknown]
  - Atrial pressure [Unknown]
  - Malaise [Unknown]
  - Gastrooesophageal reflux disease [Unknown]
  - Fatigue [Unknown]
  - Extra dose administered [Unknown]

NARRATIVE: CASE EVENT DATE: 20210611
